FAERS Safety Report 9960278 (Version 1)
Quarter: 2014Q1

REPORT INFORMATION
  Report Type: Spontaneous
  Country: US (occurrence: None)
  Receive Date: 20140228
  Receipt Date: 20140228
  Transmission Date: 20141002
  Serious: No
  Sender: FDA-Public Use
  Company Number: None

PATIENT
  Sex: Female
  Weight: 68.95 kg

DRUGS (2)
  1. ESTRADIOL GENERIC PATCH [Suspect]
     Indication: MENOPAUSAL SYMPTOMS
     Dosage: PRIOR TO 2004 ADHESIVE REACTION TO GENERIC PATCH
  2. ESTRADIOL GENERIC PATCH [Suspect]
     Indication: INSOMNIA
     Dosage: PRIOR TO 2004 ADHESIVE REACTION TO GENERIC PATCH

REACTIONS (2)
  - Rash [None]
  - Skin reaction [None]
